FAERS Safety Report 14555082 (Version 2)
Quarter: 2018Q1

REPORT INFORMATION
  Report Type: Spontaneous
  Country: US (occurrence: US)
  Receive Date: 20180220
  Receipt Date: 20180301
  Transmission Date: 20180509
  Serious: Yes (Death, Hospitalization, Other)
  Sender: FDA-Public Use
  Company Number: US-PFIZER INC-2018072782

PATIENT
  Age: 84 Year
  Sex: Female
  Weight: 63.5 kg

DRUGS (1)
  1. CELEBREX [Suspect]
     Active Substance: CELECOXIB
     Dosage: 200 MG, 1X/DAY
     Route: 048

REACTIONS (11)
  - Pneumonia [Fatal]
  - Urinary tract infection [Unknown]
  - Bacterial test positive [Unknown]
  - Atrial fibrillation [Unknown]
  - Acute kidney injury [Unknown]
  - Sepsis [Unknown]
  - Encephalopathy [Unknown]
  - Kidney infection [Fatal]
  - Bronchitis [Unknown]
  - Thrombosis [Unknown]
  - Cardiac arrest [Unknown]
